FAERS Safety Report 21446102 (Version 2)
Quarter: 2022Q4

REPORT INFORMATION
  Report Type: Spontaneous
  Country: US (occurrence: None)
  Receive Date: 20221012
  Receipt Date: 20221116
  Transmission Date: 20230112
  Serious: No
  Sender: FDA-Public Use
  Company Number: 2022A319771

PATIENT
  Sex: Male
  Weight: 132.9 kg

DRUGS (1)
  1. BYDUREON BCISE [Suspect]
     Active Substance: EXENATIDE
     Indication: Diabetes mellitus
     Route: 058

REACTIONS (5)
  - Weight decreased [Unknown]
  - Injection site haemorrhage [Unknown]
  - Incorrect dose administered [Unknown]
  - Device delivery system issue [Unknown]
  - Device leakage [Unknown]
